FAERS Safety Report 14383541 (Version 4)
Quarter: 2018Q1

REPORT INFORMATION
  Report Type: Spontaneous
  Country: DE (occurrence: DE)
  Receive Date: 20180115
  Receipt Date: 20180219
  Transmission Date: 20180509
  Serious: Yes (Other)
  Sender: FDA-Public Use
  Company Number: DE-AMGEN-DEUSP2018004429

PATIENT
  Age: 77 Year
  Sex: Female

DRUGS (5)
  1. AMILORID COMP [Concomitant]
     Active Substance: AMILORIDE HYDROCHLORIDE\HYDROCHLOROTHIAZIDE
     Dosage: (5/50)
  2. METOPROLOL SUCCINATE. [Concomitant]
     Active Substance: METOPROLOL SUCCINATE
     Dosage: 95 MG, UNK
  3. CANDESARTAN COMP. [Concomitant]
     Dosage: (16/12.5)
  4. PROLIA [Suspect]
     Active Substance: DENOSUMAB
     Indication: PRODUCT USED FOR UNKNOWN INDICATION
     Dosage: 60 MG, UNK
     Route: 065
  5. ELIQUIS [Concomitant]
     Active Substance: APIXABAN
     Dosage: 5 MG, UNK

REACTIONS (7)
  - Myalgia [Not Recovered/Not Resolved]
  - Injection site pain [Recovering/Resolving]
  - Respiratory distress [Not Recovered/Not Resolved]
  - Dyspnoea [Recovering/Resolving]
  - Lymphadenopathy [Not Recovered/Not Resolved]
  - Mobility decreased [Recovering/Resolving]
  - Peripheral vascular disorder [Not Recovered/Not Resolved]
